FAERS Safety Report 8846673 (Version 1)
Quarter: 2012Q4

REPORT INFORMATION
  Report Type: 
  Country: US (occurrence: US)
  Receive Date: 20121017
  Receipt Date: 20121017
  Transmission Date: 20130627
  Serious: No
  Sender: FDA-Public Use
  Company Number: US-B.I. PHARMACEUTICALS,INC./RIDGEFIELD-2012-BP-24198BP

PATIENT
  Age: 42 Year
  Sex: Female

DRUGS (4)
  1. SPIRIVA [Suspect]
     Indication: BRONCHITIS CHRONIC
     Dosage: 18 mcg
     Route: 055
     Dates: start: 20120927
  2. NASONEX [Concomitant]
     Indication: HYPERSENSITIVITY
     Route: 045
     Dates: start: 2007
  3. MUCINEX D [Concomitant]
     Indication: HYPERSENSITIVITY
     Dosage: 1200 mg
     Route: 048
     Dates: start: 2002
  4. ALLEGRA [Concomitant]
     Indication: HYPERSENSITIVITY
     Dosage: 180 mg
     Dates: start: 2002

REACTIONS (3)
  - Dizziness [Not Recovered/Not Resolved]
  - Oropharyngeal pain [Recovered/Resolved]
  - Nasal congestion [Not Recovered/Not Resolved]
